FAERS Safety Report 6228161-2 (Version None)
Quarter: 2009Q2

REPORT INFORMATION
  Report Type: 
  Country: None (occurrence: None)
  Receive Date: 20090612
  Receipt Date: 20090609
  Transmission Date: 20091009
  Serious: Yes (Hospitalization, Other)
  Sender: FDA-Public Use
  Company Number: US-BRISTOL-MYERS SQUIBB COMPANY-14657639

PATIENT
  Sex: Female

DRUGS (6)
  1. ERBITUX [Suspect]
     Indication: COLORECTAL CANCER
  2. INSULIN [Concomitant]
  3. CARDIZEM [Concomitant]
  4. MAGNESIUM SULFATE [Concomitant]
  5. CALCIUM [Concomitant]
  6. BENADRYL [Concomitant]
     Indication: PREMEDICATION

REACTIONS (2)
  - BLOOD MAGNESIUM DECREASED [None]
  - BRADYCARDIA [None]
